FAERS Safety Report 12394645 (Version 4)
Quarter: 2016Q3

REPORT INFORMATION
  Report Type: Spontaneous
  Country: IT (occurrence: IT)
  Receive Date: 20160523
  Receipt Date: 20160906
  Transmission Date: 20161109
  Serious: Yes (Hospitalization, Other)
  Sender: FDA-Public Use
  Company Number: IT-ROCHE-1761073

PATIENT
  Age: 76 Year
  Sex: Female
  Weight: 73 kg

DRUGS (9)
  1. HERCEPTIN [Suspect]
     Active Substance: TRASTUZUMAB
     Indication: HER-2 POSITIVE BREAST CANCER
     Dosage: 150 MG 1 VIAL FOR INTRAVENOUS USE, FORM :POWDER FOR CONCENTRATE FOR SOLUTION FOR INTRAVENOUS INFUSIO
     Route: 042
     Dates: start: 20130730, end: 2014
  2. HERCEPTIN [Suspect]
     Active Substance: TRASTUZUMAB
     Indication: HER-2 POSITIVE BREAST CANCER
     Route: 058
  3. HERCEPTIN [Suspect]
     Active Substance: TRASTUZUMAB
     Dosage: RESTARTED?150 MG 1 VIAL FOR INTRAVENOUS USE, FORM :POWDER FOR CONCENTRATE FOR SOLUTION FOR INTRAVENO
     Route: 042
     Dates: start: 20150127, end: 20160810
  4. MICARDIS [Concomitant]
     Active Substance: TELMISARTAN
     Indication: HYPERTENSION
  5. RYTMONORM [Concomitant]
     Active Substance: PROPAFENONE
     Indication: HYPERTENSION
  6. PARIET [Concomitant]
     Active Substance: RABEPRAZOLE SODIUM
     Indication: GASTRITIS
  7. GEMCITABINE HYDROCHLORIDE. [Suspect]
     Active Substance: GEMCITABINE HYDROCHLORIDE
     Indication: HER-2 POSITIVE BREAST CANCER
     Dosage: FREQUENCY: CYCLICAL
     Route: 042
     Dates: start: 20130730, end: 20141023
  8. PACLITAXEL. [Suspect]
     Active Substance: PACLITAXEL
     Indication: BREAST CANCER
     Dosage: FREQUENCY: CYCLICAL
     Route: 042
     Dates: start: 20150720, end: 20151111
  9. KADCYLA [Suspect]
     Active Substance: ADO-TRASTUZUMAB EMTANSINE
     Indication: HER-2 POSITIVE BREAST CANCER
     Route: 042
     Dates: start: 20141106, end: 20141127

REACTIONS (9)
  - Dysphonia [Unknown]
  - Dyspnoea exertional [Recovering/Resolving]
  - Ejection fraction decreased [Recovering/Resolving]
  - Diarrhoea [Recovering/Resolving]
  - Myalgia [Unknown]
  - Thrombocytopenia [Recovering/Resolving]
  - Vocal cord paralysis [Recovering/Resolving]
  - Arthralgia [Unknown]
  - Cough [Unknown]

NARRATIVE: CASE EVENT DATE: 20141023
